FAERS Safety Report 8350398-7 (Version None)
Quarter: 2012Q2

REPORT INFORMATION
  Report Type: 
  Country: None (occurrence: None)
  Receive Date: 20120510
  Receipt Date: 20120503
  Transmission Date: 20120825
  Serious: Yes (Hospitalization, Other)
  Sender: FDA-Public Use
  Company Number: US-BAYER-2012-044634

PATIENT
  Age: 39 Year
  Sex: Female
  Weight: 98.866 kg

DRUGS (6)
  1. KEFLEX [Concomitant]
  2. YAZ [Suspect]
     Indication: CONTRACEPTION
     Dosage: UNK
     Dates: start: 20081001, end: 20090501
  3. SYNTHROID [Concomitant]
     Dosage: 0.05 MG, UNK
  4. VITAMIN B-12 [Concomitant]
     Dosage: 100 ?G, QD
  5. ACETAMINOPHEN [Concomitant]
     Indication: PAIN
  6. FLEXERIL [Concomitant]

REACTIONS (13)
  - PULMONARY INFARCTION [None]
  - OEDEMA PERIPHERAL [None]
  - PAIN IN EXTREMITY [None]
  - PULMONARY EMBOLISM [None]
  - LACERATION [None]
  - DEEP VEIN THROMBOSIS [None]
  - DIZZINESS [None]
  - THROMBOSIS [None]
  - DERMAL CYST [None]
  - SKIN INFECTION [None]
  - THROMBOPHLEBITIS [None]
  - HEAD INJURY [None]
  - LOSS OF CONSCIOUSNESS [None]
